FAERS Safety Report 6180972-8 (Version None)
Quarter: 2009Q2

REPORT INFORMATION
  Report Type: 
  Country: None (occurrence: None)
  Receive Date: 20090506
  Receipt Date: 20090423
  Transmission Date: 20091009
  Serious: Yes (Other)
  Sender: FDA-Public Use
  Company Number: JP-AMGEN-US345320

PATIENT
  Age: 64 Year
  Sex: Female

DRUGS (3)
  1. ENBREL [Suspect]
     Indication: RHEUMATOID ARTHRITIS
     Dosage: UNKNOWN
     Route: 058
     Dates: start: 20080301
  2. METHOTREXATE [Suspect]
     Dosage: UNKNOWN
  3. TACROLIMUS [Concomitant]
     Dosage: UNKNOWN

REACTIONS (2)
  - DERMATOMYOSITIS [None]
  - INTERSTITIAL LUNG DISEASE [None]
